FAERS Safety Report 4485106-3 (Version None)
Quarter: 2004Q4

REPORT INFORMATION
  Report Type: 
  Country: None (occurrence: None)
  Receive Date: 20041026
  Receipt Date: 20031013
  Transmission Date: 20050328
  Serious: No
  Sender: FDA-Public Use
  Company Number: US-BRISTOL-MYERS SQUIBB COMPANY-12409249

PATIENT
  Age: 63 Year
  Sex: Male
  Weight: 95 kg

DRUGS (8)
  1. GLUCOPHAGE XR [Suspect]
     Indication: DIABETES MELLITUS
     Route: 048
     Dates: start: 20030901
  2. GLUCOTROL [Concomitant]
  3. OXYCODONE [Concomitant]
  4. TENORMIN [Concomitant]
  5. ZESTRIL [Concomitant]
  6. ZOCOR [Concomitant]
  7. REMERON [Concomitant]
  8. CLONAZEPAM [Concomitant]

REACTIONS (2)
  - ANAL FISSURE [None]
  - PAIN IN EXTREMITY [None]
